FAERS Safety Report 6341175-7 (Version None)
Quarter: 2009Q3

REPORT INFORMATION
  Report Type: 
  Country: None (occurrence: None)
  Receive Date: 20090904
  Receipt Date: 20090427
  Transmission Date: 20100115
  Serious: No
  Sender: FDA-Public Use
  Company Number: A0774367A

PATIENT
  Age: 61 Year
  Sex: Male
  Weight: 80.9 kg

DRUGS (8)
  1. REQUIP [Suspect]
     Indication: PARKINSON'S DISEASE
     Dosage: .25MG THREE TIMES PER DAY
     Route: 048
     Dates: start: 20030101, end: 20070101
  2. LEVOXYL [Concomitant]
  3. MAPROTILINE [Concomitant]
  4. ASPIRIN [Concomitant]
  5. EMSAM [Concomitant]
  6. SELEGILINE HCL [Concomitant]
  7. PRAVASTATIN [Concomitant]
  8. LISINOPRIL [Concomitant]

REACTIONS (4)
  - DEPRESSION [None]
  - DYSPEPSIA [None]
  - GASTROINTESTINAL DISORDER [None]
  - NAUSEA [None]
